FAERS Safety Report 6441773-6 (Version None)
Quarter: 2009Q4

REPORT INFORMATION
  Report Type: 
  Country: None (occurrence: None)
  Receive Date: 20091116
  Receipt Date: 20091102
  Transmission Date: 20100525
  Serious: Yes (Other)
  Sender: FDA-Public Use
  Company Number: US-PFIZER INC-2009293042

PATIENT
  Sex: Male
  Weight: 99.336 kg

DRUGS (12)
  1. CHANTIX [Suspect]
     Indication: SMOKING CESSATION THERAPY
     Route: 048
     Dates: end: 20090101
  2. NITROGLYCERIN [Suspect]
     Indication: CHEST PAIN
  3. METFORMIN HCL [Suspect]
     Indication: DIABETES MELLITUS
     Dosage: FREQUENCY: 2X/DAY,
  4. HALOPERIDOL [Suspect]
     Dosage: UNK
  5. LITHIUM CARBONATE [Suspect]
  6. FLUOXETINE HYDROCHLORIDE [Suspect]
     Dosage: FREQUENCY: 2X/DAY,
  7. LOVASTATIN [Suspect]
     Indication: CARDIAC DISORDER
  8. GEMFIBROZIL [Suspect]
     Dosage: FREQUENCY: 2X/DAY,
  9. NIFEDIPINE [Suspect]
     Indication: CARDIAC DISORDER
  10. ATENOLOL [Suspect]
     Indication: CARDIAC DISORDER
  11. OMEPRAZOLE [Suspect]
     Indication: GASTROINTESTINAL DISORDER
     Dosage: FREQUENCY: 2X/DAY,
  12. LISINOPRIL [Suspect]
     Indication: CARDIAC DISORDER
     Dosage: 40 MG, 2X/DAY

REACTIONS (5)
  - AGGRESSION [None]
  - CHEST PAIN [None]
  - DRUG INTERACTION [None]
  - LOSS OF CONSCIOUSNESS [None]
  - MOOD SWINGS [None]
